FAERS Safety Report 13901281 (Version 1)
Quarter: 2017Q3

REPORT INFORMATION
  Report Type: Spontaneous
  Country: US (occurrence: US)
  Receive Date: 20170824
  Receipt Date: 20170824
  Transmission Date: 20171127
  Serious: No
  Sender: FDA-Public Use
  Company Number: US-ENDO PHARMACEUTICALS INC-2016-007403

PATIENT
  Sex: Female
  Weight: 49.89 kg

DRUGS (1)
  1. OXYCODONE/ACETAMINOPHEN TABLETS 10MG/325MG [Suspect]
     Active Substance: ACETAMINOPHEN\OXYCODONE HYDROCHLORIDE
     Indication: PAIN
     Dosage: 6 DF, DAILY
     Route: 048
     Dates: start: 201612

REACTIONS (1)
  - Abdominal discomfort [Not Recovered/Not Resolved]
